FAERS Safety Report 9223901 (Version 3)
Quarter: 2013Q2

REPORT INFORMATION
  Report Type: Spontaneous
  Country: US (occurrence: US)
  Receive Date: 20130411
  Receipt Date: 20130529
  Transmission Date: 20140414
  Serious: No
  Sender: FDA-Public Use
  Company Number: US-009507513-1304USA004242

PATIENT
  Age: 25 Year
  Sex: Female
  Weight: 59.86 kg

DRUGS (2)
  1. IMPLANON [Suspect]
     Dosage: 1 DF, LEFT ARM
     Route: 059
     Dates: start: 20130405
  2. IMPLANON [Suspect]
     Dosage: 1 UNK, UNK
     Route: 059
     Dates: start: 20130412

REACTIONS (3)
  - Device difficult to use [Recovered/Resolved with Sequelae]
  - Product quality issue [Unknown]
  - No adverse event [Unknown]
